FAERS Safety Report 7703600-6 (Version None)
Quarter: 2011Q3

REPORT INFORMATION
  Report Type: 
  Country: None (occurrence: None)
  Receive Date: 20110823
  Receipt Date: 20110817
  Transmission Date: 20111222
  Serious: Yes (Life-Threatening, Hospitalization)
  Sender: FDA-Public Use
  Company Number: PHHO2010GB15681

PATIENT
  Sex: Male
  Weight: 76 kg

DRUGS (6)
  1. DICLOFENAC SODIUM [Suspect]
     Indication: OSTEOARTHRITIS
     Dosage: 25 MG, TID
     Route: 048
     Dates: start: 20020613
  2. CELECOXIB [Concomitant]
     Indication: OSTEOARTHRITIS
     Dosage: UNK
     Route: 048
     Dates: start: 20090325, end: 20090617
  3. LANSOPRAZOLE [Concomitant]
     Indication: BARRETT'S OESOPHAGUS
     Dosage: 30 MG, TID
     Dates: start: 20020730
  4. TADALAFIL [Concomitant]
     Indication: BENIGN PROSTATIC HYPERPLASIA
     Dosage: UNK
     Dates: start: 20050617
  5. MAXOLON [Concomitant]
     Dosage: 10 MG, TID
     Dates: start: 20020827
  6. PHENELZINE [Concomitant]
     Indication: MAJOR DEPRESSION
     Dosage: 15 MG, TID
     Dates: start: 20021118

REACTIONS (3)
  - CORONARY ARTERY DISEASE [None]
  - ANGINA PECTORIS [None]
  - ARTERIOSCLEROSIS CORONARY ARTERY [None]
